FAERS Safety Report 8025173-3 (Version None)
Quarter: 2012Q1

REPORT INFORMATION
  Report Type: 
  Country: None (occurrence: None)
  Receive Date: 20120105
  Receipt Date: 20120103
  Transmission Date: 20120608
  Serious: Yes (Other)
  Sender: FDA-Public Use
  Company Number: US-GLAXOSMITHKLINE-A0959814A

PATIENT
  Age: 72 Year
  Sex: Female

DRUGS (2)
  1. ENALAPRIL MALEATE [Concomitant]
  2. ADVAIR DISKUS 100/50 [Suspect]
     Indication: SINUSITIS
     Dosage: 1PUFF TWICE PER DAY
     Route: 055
     Dates: start: 20111201, end: 20111224

REACTIONS (4)
  - PARAESTHESIA [None]
  - MUSCLE SPASMS [None]
  - MALAISE [None]
  - DISABILITY [None]
